FAERS Safety Report 14068371 (Version 3)
Quarter: 2017Q4

REPORT INFORMATION
  Report Type: Report from Study
  Country: AU (occurrence: AU)
  Receive Date: 20171010
  Receipt Date: 20171107
  Transmission Date: 20180321
  Serious: Yes (Disabling, Other)
  Sender: FDA-Public Use
  Company Number: AU-REGENERON PHARMACEUTICALS, INC.-2017-23624

PATIENT

DRUGS (1)
  1. EYLEA [Suspect]
     Active Substance: AFLIBERCEPT
     Indication: NEOVASCULAR AGE-RELATED MACULAR DEGENERATION
     Dosage: UNK
     Dates: start: 20121201

REACTIONS (33)
  - Hiatus hernia [Not Recovered/Not Resolved]
  - Hernia pain [Unknown]
  - Dry eye [Not Recovered/Not Resolved]
  - Fear of injection [Recovered/Resolved]
  - Poor peripheral circulation [Unknown]
  - Mass [Unknown]
  - Insomnia [Not Recovered/Not Resolved]
  - Cataract [Recovered/Resolved]
  - Hernia [Unknown]
  - Weight increased [Unknown]
  - Influenza [Unknown]
  - Knee arthroplasty [Unknown]
  - Atrial fibrillation [Unknown]
  - Gait disturbance [Not Recovered/Not Resolved]
  - Depressed mood [Not Recovered/Not Resolved]
  - Pain [Unknown]
  - Urinary incontinence [Unknown]
  - Ovarian cyst [Not Recovered/Not Resolved]
  - Dyspnoea [Unknown]
  - Feeling hot [Unknown]
  - Abdominal pain [Not Recovered/Not Resolved]
  - Fall [Unknown]
  - Pertussis [Unknown]
  - Pulmonary thrombosis [Unknown]
  - Cystitis [Recovered/Resolved]
  - Visual impairment [Unknown]
  - Fatigue [Unknown]
  - Hypoaesthesia [Unknown]
  - Eye haemorrhage [Unknown]
  - Cystitis [Recovered/Resolved]
  - Hyperhidrosis [Unknown]
  - Hot flush [Not Recovered/Not Resolved]
  - Fear [Unknown]

NARRATIVE: CASE EVENT DATE: 2014
